FAERS Safety Report 22356801 (Version 2)
Quarter: 2023Q2

REPORT INFORMATION
  Report Type: Spontaneous
  Country: IT (occurrence: IT)
  Receive Date: 20230523
  Receipt Date: 20230620
  Transmission Date: 20230722
  Serious: Yes (Hospitalization)
  Sender: FDA-Public Use
  Company Number: IT-JNJFOC-20230441836

PATIENT
  Age: 46 Year
  Sex: Female

DRUGS (15)
  1. DEXAMETHASONE [Suspect]
     Active Substance: DEXAMETHASONE
     Indication: Plasma cell myeloma
     Route: 065
     Dates: start: 20190510, end: 20190705
  2. DOXORUBICIN [Suspect]
     Active Substance: DOXORUBICIN
     Indication: Plasma cell myeloma
     Route: 065
     Dates: start: 20190604, end: 20190626
  3. VELCADE [Suspect]
     Active Substance: BORTEZOMIB
     Indication: Plasma cell myeloma
     Route: 065
     Dates: start: 20190723
  4. VELCADE [Suspect]
     Active Substance: BORTEZOMIB
     Dates: start: 20190510, end: 20190705
  5. VELCADE [Suspect]
     Active Substance: BORTEZOMIB
     Dosage: A DOSE OF 1.30 MG/MQ ON DAYS 1, 4, 8 AND 11 OF THE CYCLE
     Route: 065
  6. RAMIPRIL [Concomitant]
     Active Substance: RAMIPRIL
     Indication: Product used for unknown indication
     Dates: start: 20190501
  7. ACYCLOVIR [Concomitant]
     Active Substance: ACYCLOVIR
     Indication: Prophylaxis
     Dates: start: 20190501
  8. ENOXAPARIN [Concomitant]
     Active Substance: ENOXAPARIN
     Indication: Product used for unknown indication
  9. OMEPRAZOLE [Concomitant]
     Active Substance: OMEPRAZOLE
     Indication: Prophylaxis
     Dates: start: 20190501
  10. BACTRIM [Concomitant]
     Active Substance: SULFAMETHOXAZOLE\TRIMETHOPRIM
     Indication: Prophylaxis
     Dates: start: 20190501
  11. FENTANYL [Concomitant]
     Active Substance: FENTANYL
     Indication: Plasma cell myeloma
     Dates: start: 20190501
  12. DEURSIL [Concomitant]
     Active Substance: URSODIOL
     Indication: Prophylaxis
     Dates: start: 20190501
  13. AMLODIPINE [Concomitant]
     Active Substance: AMLODIPINE BESYLATE
     Indication: Product used for unknown indication
     Dates: start: 20190501
  14. INDAPAMIDE [Concomitant]
     Active Substance: INDAPAMIDE
     Indication: Product used for unknown indication
     Dates: start: 20190501
  15. AMITRIPTYLINE HYDROCHLORIDE [Concomitant]
     Active Substance: AMITRIPTYLINE HYDROCHLORIDE
     Indication: Product used for unknown indication
     Dates: start: 20190620

REACTIONS (1)
  - Gastrointestinal disorder [Recovered/Resolved]

NARRATIVE: CASE EVENT DATE: 20190705
